FAERS Safety Report 9063791 (Version 1)
Quarter: 2013Q1

REPORT INFORMATION
  Report Type: Report from Study
  Country: US (occurrence: US)
  Receive Date: 20130131
  Receipt Date: 20130131
  Transmission Date: 20140127
  Serious: No
  Sender: FDA-Public Use
  Company Number: US-ABBOTT-12P-163-0980902-00

PATIENT
  Age: 71 Year
  Sex: Female

DRUGS (10)
  1. HUMIRA [Suspect]
     Indication: PSORIASIS
     Route: 058
     Dates: start: 201208
  2. ATENOLOL [Concomitant]
     Indication: PALPITATIONS
  3. NAPROXEN [Concomitant]
     Indication: OSTEOARTHRITIS
  4. HYDROCHLOROTHIAZIDE [Concomitant]
     Indication: HYPERTENSION
  5. ZOLOFT [Concomitant]
     Indication: PAIN
  6. PROTONIX [Concomitant]
     Indication: GASTROOESOPHAGEAL REFLUX DISEASE
  7. VITAMIN D [Concomitant]
     Indication: PSORIASIS
  8. SUPER OMEGA 3 [Concomitant]
     Indication: PSORIASIS
     Dosage: 4 TABS A DAY
  9. COMPLETE B COMPLEX [Concomitant]
     Indication: PSORIASIS
  10. OPTIZINC [Concomitant]
     Indication: PSORIASIS

REACTIONS (2)
  - Drug ineffective [Not Recovered/Not Resolved]
  - Psoriasis [Not Recovered/Not Resolved]
